FAERS Safety Report 23719140 (Version 1)
Quarter: 2024Q2

REPORT INFORMATION
  Report Type: Spontaneous
  Country: FR (occurrence: FR)
  Receive Date: 20240408
  Receipt Date: 20240408
  Transmission Date: 20240716
  Serious: Yes (Other)
  Sender: FDA-Public Use
  Company Number: None

PATIENT
  Age: 52 Year
  Sex: Female
  Weight: 96 kg

DRUGS (3)
  1. PACLITAXEL [Suspect]
     Active Substance: PACLITAXEL
     Indication: Triple negative breast cancer
     Dosage: ROA-20045000?ROA: INTRAVENOUS (NOT OTHERWISE SPECIFIED) ( INT )
     Dates: start: 20230227
  2. CARBOPLATIN [Suspect]
     Active Substance: CARBOPLATIN
     Indication: Triple negative breast cancer
     Dosage: AUC 1.5 EVERY WEEK?ROA-20045000?INTRAVENOUS (NOT OTHERWISE SPECIFIED) ( INT )
     Dates: start: 20230227
  3. KEYTRUDA [Suspect]
     Active Substance: PEMBROLIZUMAB
     Indication: Triple negative breast cancer
     Dosage: ROA-20045000?ROA: INTRAVENOUS (NOT OTHERWISE SPECIFIED) ( INT )
     Dates: start: 20230227, end: 20231218

REACTIONS (2)
  - Hepatic cytolysis [Unknown]
  - Neutropenia [Unknown]

NARRATIVE: CASE EVENT DATE: 20230303
